FAERS Safety Report 5525142-9 (Version None)
Quarter: 2007Q4

REPORT INFORMATION
  Report Type: 
  Country: None (occurrence: None)
  Receive Date: 20071126
  Receipt Date: 20071112
  Transmission Date: 20080405
  Serious: Yes (Other)
  Sender: FDA-Public Use
  Company Number: DE-ELI_LILLY_AND_COMPANY-DE200711004536

PATIENT
  Age: 64 Year
  Sex: Female

DRUGS (12)
  1. OLANZAPINE [Suspect]
     Dosage: 10 MG, UNK
     Route: 048
     Dates: start: 20060118, end: 20060131
  2. LITHIUM CARBONATE [Concomitant]
     Dosage: 2 D/F, UNK
     Dates: end: 20060104
  3. LITHIUM CARBONATE [Concomitant]
     Dosage: 900 MG, DAILY (1/D)
     Route: 048
     Dates: start: 20060105, end: 20060130
  4. CIPRALEX [Concomitant]
     Dosage: 10 MG, DAILY (1/D)
     Route: 048
     Dates: start: 20051101, end: 20060118
  5. CIPRALEX [Concomitant]
     Dosage: 20 MG, DAILY (1/D)
     Route: 048
     Dates: start: 20060119, end: 20060130
  6. ACETYLSALICYLSAEURE [Concomitant]
     Dosage: 100 MG, DAILY (1/D)
     Route: 048
     Dates: start: 20050801
  7. TRUXAL [Concomitant]
     Dosage: 100 MG, DAILY (1/D)
     Route: 048
     Dates: start: 20051101, end: 20060131
  8. PANTOPRAZOLE SODIUM [Concomitant]
     Dosage: 20 MG, DAILY (1/D)
     Route: 048
     Dates: start: 20051201
  9. VOLTAREN /00372301/ [Concomitant]
     Dosage: 150 MG, DAILY (1/D)
     Route: 048
     Dates: start: 20060110, end: 20060207
  10. ENAHEXAL [Concomitant]
     Dosage: 20 MG, UNK
     Dates: start: 20060112
  11. TRIAMTERENE AND HYDROCHLOROTHIAZIDE [Concomitant]
     Dosage: 1 D/F, DAILY (1/D)
     Route: 048
     Dates: start: 20060113
  12. NOVAMIN [Concomitant]
     Dosage: 32 IU, UNK
     Dates: start: 20050101

REACTIONS (4)
  - ALANINE AMINOTRANSFERASE INCREASED [None]
  - ASPARTATE AMINOTRANSFERASE INCREASED [None]
  - DRUG INTERACTION [None]
  - GAMMA-GLUTAMYLTRANSFERASE INCREASED [None]
